FAERS Safety Report 21898508 (Version 1)
Quarter: 2023Q1

REPORT INFORMATION
  Report Type: Spontaneous
  Country: PR (occurrence: PR)
  Receive Date: 20230123
  Receipt Date: 20230123
  Transmission Date: 20230417
  Serious: Yes (Hospitalization)
  Sender: FDA-Public Use
  Company Number: PR-RIGEL PHARMACEUTICALS, INC.-2023FOS000052

PATIENT
  Age: 67 Year
  Sex: Female
  Weight: 74.376 kg

DRUGS (1)
  1. TAVALISSE [Suspect]
     Active Substance: FOSTAMATINIB
     Indication: Myelodysplastic syndrome
     Dosage: 150 MG, BID
     Route: 048
     Dates: start: 202211

REACTIONS (2)
  - Haemoglobin decreased [Unknown]
  - Off label use [Unknown]

NARRATIVE: CASE EVENT DATE: 20221101
